FAERS Safety Report 24592487 (Version 1)
Quarter: 2024Q4

REPORT INFORMATION
  Report Type: Spontaneous
  Country: GB (occurrence: GB)
  Receive Date: 20241108
  Receipt Date: 20241108
  Transmission Date: 20250115
  Serious: Yes (Other)
  Sender: TEVA
  Company Number: None

PATIENT
  Age: 47 Year
  Sex: Female
  Weight: 87 kg

DRUGS (4)
  1. DOXYCYCLINE [Suspect]
     Active Substance: DOXYCYCLINE
     Indication: Cellulitis
     Route: 065
     Dates: start: 20241025, end: 20241029
  2. UTROGESTAN [Concomitant]
     Active Substance: PROGESTERONE
     Indication: Endometriosis
     Dates: start: 20210228
  3. WEGOVY [Concomitant]
     Active Substance: SEMAGLUTIDE
     Dates: start: 20230201
  4. ESTRADIOL [Concomitant]
     Active Substance: ESTRADIOL
     Indication: Menopause
     Dates: start: 20210301

REACTIONS (1)
  - Anxiety [Recovering/Resolving]

NARRATIVE: CASE EVENT DATE: 20241026
